FAERS Safety Report 8823336 (Version 3)
Quarter: 2012Q4

REPORT INFORMATION
  Report Type: 
  Country: US (occurrence: US)
  Receive Date: 20121003
  Receipt Date: 20121107
  Transmission Date: 20130627
  Serious: Yes (Hospitalization, Other)
  Sender: FDA-Public Use
  Company Number: US-VERTEX PHARMACEUTICAL INC.-2012-021129

PATIENT
  Age: 60 None
  Sex: Male
  Weight: 101 kg

DRUGS (3)
  1. VX-950 [Suspect]
     Indication: HEPATITIS C
     Dosage: 750 mg, tid
     Route: 048
     Dates: start: 20120529
  2. PEGASYS [Suspect]
     Indication: HEPATITIS C
     Dosage: 180 ?g, qw
     Route: 058
     Dates: start: 20120529
  3. RIBAPAK [Suspect]
     Indication: HEPATITIS C
     Dosage: 600 mg, bid
     Route: 048
     Dates: start: 20120529

REACTIONS (15)
  - Staphylococcal bacteraemia [Unknown]
  - Arthritis infective [Unknown]
  - Anaemia [Unknown]
  - Dizziness [Unknown]
  - Hypotension [Unknown]
  - Muscle spasms [Unknown]
  - Abdominal pain upper [Unknown]
  - Sinusitis [Recovered/Resolved]
  - Chills [Recovered/Resolved]
  - Pyrexia [Recovered/Resolved]
  - Fatigue [Unknown]
  - Blood thyroid stimulating hormone increased [Unknown]
  - Diarrhoea [Unknown]
  - Haemorrhoids [Unknown]
  - Anorectal discomfort [Unknown]
